FAERS Safety Report 8020060-9 (Version None)
Quarter: 2012Q1

REPORT INFORMATION
  Report Type: 
  Country: None (occurrence: None)
  Receive Date: 20120103
  Receipt Date: 20111227
  Transmission Date: 20120608
  Serious: Yes (Hospitalization, Other)
  Sender: FDA-Public Use
  Company Number: FR-B.I. PHARMACEUTICALS,INC./RIDGEFIELD-2011-FF-01227FF

PATIENT
  Age: 43 Year
  Sex: Male

DRUGS (2)
  1. PRAMIPEXOLE DIHYDROCHLORIDE [Suspect]
     Indication: RESTLESS LEGS SYNDROME
     Dosage: 1.4 MG
     Route: 048
  2. DEPAKOT [Concomitant]
     Indication: BIPOLAR DISORDER
     Dosage: 500 MG
     Route: 048

REACTIONS (7)
  - DEPRESSION [None]
  - HALLUCINATION [None]
  - HYPERSEXUALITY [None]
  - SUICIDAL IDEATION [None]
  - PARAPHILIA [None]
  - OVERDOSE [None]
  - PATHOLOGICAL GAMBLING [None]
